FAERS Safety Report 12789949 (Version 1)
Quarter: 2016Q3

REPORT INFORMATION
  Report Type: Spontaneous
  Country: US (occurrence: US)
  Receive Date: 20160928
  Receipt Date: 20160928
  Transmission Date: 20161109
  Serious: Yes (Other)
  Sender: FDA-Public Use
  Company Number: US-ASTRAZENECA-2016SF01301

PATIENT
  Age: 2756 Week
  Sex: Male
  Weight: 68 kg

DRUGS (6)
  1. MOVANTIK [Suspect]
     Active Substance: NALOXEGOL OXALATE
     Indication: CONSTIPATION
     Route: 048
     Dates: start: 20160827, end: 20160907
  2. MOVANTIK [Suspect]
     Active Substance: NALOXEGOL OXALATE
     Indication: CONSTIPATION
     Route: 048
     Dates: end: 20160909
  3. MOVANTIK [Suspect]
     Active Substance: NALOXEGOL OXALATE
     Indication: CONSTIPATION
     Route: 048
     Dates: start: 201507
  4. VALIUM [Concomitant]
     Active Substance: DIAZEPAM
     Indication: MUSCLE SPASMS
     Dosage: 5.0MG AS REQUIRED
     Dates: start: 2014
  5. VALIUM [Concomitant]
     Active Substance: DIAZEPAM
     Indication: ANXIETY
     Dosage: 5.0MG AS REQUIRED
     Dates: start: 2014
  6. OXYCODONE [Concomitant]
     Active Substance: OXYCODONE
     Indication: PAIN
     Dosage: 15.0MG AS REQUIRED
     Dates: start: 2012

REACTIONS (16)
  - Insomnia [Unknown]
  - Dehydration [Unknown]
  - Abdominal pain [Unknown]
  - Withdrawal syndrome [Unknown]
  - Thirst [Unknown]
  - Sinusitis [Unknown]
  - Malaise [Unknown]
  - Constipation [Unknown]
  - Abdominal discomfort [Unknown]
  - Drug ineffective [Unknown]
  - Pain [Unknown]
  - Headache [Unknown]
  - Diarrhoea [Unknown]
  - Nausea [Unknown]
  - Pollakiuria [Unknown]
  - Tremor [Unknown]

NARRATIVE: CASE EVENT DATE: 20160831
